FAERS Safety Report 9915733 (Version 1)
Quarter: 2014Q1

REPORT INFORMATION
  Report Type: Spontaneous
  Country: US (occurrence: None)
  Receive Date: 20140219
  Receipt Date: 20140219
  Transmission Date: 20141002
  Serious: Yes (Disabling)
  Sender: FDA-Public Use
  Company Number: None

PATIENT
  Age: 67 Year
  Sex: Female
  Weight: 90.27 kg

DRUGS (2)
  1. EVISTA [Suspect]
     Indication: BONE DENSITY DECREASED
     Dosage: 1 PILL ONCE DAILY
     Route: 048
     Dates: start: 20131119, end: 20140126
  2. SIMPLY SLIM [Concomitant]

REACTIONS (6)
  - Local swelling [None]
  - Arthralgia [None]
  - Headache [None]
  - Pain [None]
  - Depression [None]
  - Epistaxis [None]
